FAERS Safety Report 5686523-6 (Version None)
Quarter: 2008Q1

REPORT INFORMATION
  Report Type: 
  Country: None (occurrence: None)
  Receive Date: 20080328
  Receipt Date: 20070927
  Transmission Date: 20080703
  Serious: Yes (Other)
  Sender: FDA-Public Use
  Company Number: US-BAYER-US-2007-023430

PATIENT
  Age: 22 Year
  Sex: Female
  Weight: 120 kg

DRUGS (1)
  1. MIRENA [Suspect]
     Indication: CONTRACEPTION
     Route: 015
     Dates: start: 20030912, end: 20070125

REACTIONS (3)
  - ABDOMINAL PAIN [None]
  - ABORTION SPONTANEOUS [None]
  - IUCD COMPLICATION [None]
